FAERS Safety Report 9692523 (Version 3)
Quarter: 2013Q4

REPORT INFORMATION
  Report Type: Report from Study
  Country: CA (occurrence: CA)
  Receive Date: 20131118
  Receipt Date: 20131121
  Transmission Date: 20140711
  Serious: Yes (Other)
  Sender: FDA-Public Use
  Company Number: CA-ROCHE-1285915

PATIENT
  Age: 81 Year
  Sex: Female
  Weight: 56.7 kg

DRUGS (13)
  1. RITUXAN [Suspect]
     Indication: PEMPHIGUS
     Dosage: DAY 1, DAY 15
     Route: 042
     Dates: start: 20131003, end: 20131017
  2. RITUXAN [Suspect]
     Dosage: DAY 1, DAY 15
     Route: 042
  3. DIPHENHYDRAMINE HCL [Concomitant]
     Indication: PREMEDICATION
     Route: 048
     Dates: start: 20131003, end: 20131003
  4. ACETAMINOPHEN [Concomitant]
     Indication: PREMEDICATION
     Route: 048
     Dates: start: 20131003, end: 20131003
  5. METHYLPREDNISOLONE [Concomitant]
     Indication: PREMEDICATION
     Route: 042
     Dates: start: 20131003, end: 20131003
  6. MYFORTIC [Concomitant]
  7. PREDNISONE [Concomitant]
  8. ACTONEL [Concomitant]
  9. METFORMIN [Concomitant]
  10. NORVASC [Concomitant]
  11. LANSOPRAZOLE [Concomitant]
  12. TYLENOL EXTRA STRENGTH [Concomitant]
  13. LORAZEPAM [Concomitant]

REACTIONS (9)
  - Infusion related reaction [Not Recovered/Not Resolved]
  - Full blood count decreased [Unknown]
  - Heart rate increased [Unknown]
  - Chest pain [Not Recovered/Not Resolved]
  - Heart rate increased [Unknown]
  - Blood iron decreased [Not Recovered/Not Resolved]
  - Asthenia [Not Recovered/Not Resolved]
  - Dyspnoea [Recovered/Resolved]
  - Off label use [Unknown]
